FAERS Safety Report 22921589 (Version 4)
Quarter: 2023Q4

REPORT INFORMATION
  Report Type: Report from Study
  Country: US (occurrence: US)
  Receive Date: 20230908
  Receipt Date: 20231213
  Transmission Date: 20240110
  Serious: No
  Sender: FDA-Public Use
  Company Number: US-002147023-NVSC2023US193857

PATIENT
  Sex: Female

DRUGS (1)
  1. ENTRESTO [Suspect]
     Active Substance: SACUBITRIL\VALSARTAN
     Indication: Product used for unknown indication
     Dosage: 1 DOSAGEFORM, BID (24/26MG)
     Route: 048

REACTIONS (4)
  - Ill-defined disorder [Unknown]
  - Memory impairment [Unknown]
  - Blood sodium decreased [Unknown]
  - Musculoskeletal stiffness [Unknown]
